FAERS Safety Report 4472771-X (Version None)
Quarter: 2004Q4

REPORT INFORMATION
  Report Type: 
  Country: None (occurrence: None)
  Receive Date: 20041012
  Receipt Date: 20041012
  Transmission Date: 20050328
  Serious: Yes (Disabling)
  Sender: FDA-Public Use
  Company Number: None

PATIENT
  Age: 28 Year
  Sex: Male
  Weight: 70.7611 kg

DRUGS (4)
  1. RISPERDAL [Suspect]
     Indication: DEPRESSION
     Dosage: 1MG/.5MG ONCE A DAY ORAL
     Route: 048
  2. RISPERDAL [Suspect]
     Indication: PSYCHOTIC DISORDER
     Dosage: 1MG/.5MG ONCE A DAY ORAL
     Route: 048
  3. RISPERDAL [Suspect]
     Indication: SCHIZOPHRENIA
     Dosage: 1MG/.5MG ONCE A DAY ORAL
     Route: 048
  4. ZOLOFT [Suspect]
     Dosage: ONCE A DAY ORAL
     Route: 048

REACTIONS (33)
  - ABNORMAL BEHAVIOUR [None]
  - AFFECT LABILITY [None]
  - AGGRESSION [None]
  - AGITATION [None]
  - AMNESIA [None]
  - APHASIA [None]
  - ARRHYTHMIA [None]
  - COGNITIVE DISORDER [None]
  - DEPRESSION [None]
  - DISTURBANCE IN ATTENTION [None]
  - DYSGRAPHIA [None]
  - DYSKINESIA [None]
  - EXTRAOCULAR MUSCLE PARESIS [None]
  - FACIAL PALSY [None]
  - FEELING ABNORMAL [None]
  - FEELING JITTERY [None]
  - HALLUCINATION [None]
  - HOSTILITY [None]
  - HYPOAESTHESIA [None]
  - INSOMNIA [None]
  - IRRITABILITY [None]
  - LIBIDO DECREASED [None]
  - MEMORY IMPAIRMENT [None]
  - MOOD SWINGS [None]
  - MUSCLE DISORDER [None]
  - MUSCLE TWITCHING [None]
  - PALPITATIONS [None]
  - PERSONALITY CHANGE [None]
  - PSYCHOTIC DISORDER [None]
  - TARDIVE DYSKINESIA [None]
  - THINKING ABNORMAL [None]
  - TIC [None]
  - TRANSIENT ISCHAEMIC ATTACK [None]
